FAERS Safety Report 10627436 (Version 2)
Quarter: 2021Q2

REPORT INFORMATION
  Report Type: Spontaneous
  Country: US (occurrence: US)
  Receive Date: 20141205
  Receipt Date: 20210617
  Transmission Date: 20210716
  Serious: Yes (Hospitalization, Other)
  Sender: FDA-Public Use
  Company Number: US-AUROBINDO-AUR-APL-2014-12711

PATIENT
  Age: 14 Year
  Sex: Female

DRUGS (9)
  1. AMOXICILLIN. [Suspect]
     Active Substance: AMOXICILLIN
     Indication: OROPHARYNGEAL PAIN
  2. IBUPROFEN. [Suspect]
     Active Substance: IBUPROFEN
     Indication: MALAISE
  3. PSEUDOEPHEDRINE HYDROCHLORIDE. [Suspect]
     Active Substance: PSEUDOEPHEDRINE HYDROCHLORIDE
     Indication: MALAISE
  4. PSEUDOEPHEDRINE HYDROCHLORIDE. [Suspect]
     Active Substance: PSEUDOEPHEDRINE HYDROCHLORIDE
     Indication: COUGH
     Dosage: UNK
     Route: 065
  5. PSEUDOEPHEDRINE HYDROCHLORIDE. [Suspect]
     Active Substance: PSEUDOEPHEDRINE HYDROCHLORIDE
     Indication: OROPHARYNGEAL PAIN
  6. AMOXICILLIN. [Suspect]
     Active Substance: AMOXICILLIN
     Indication: MALAISE
  7. IBUPROFEN. [Suspect]
     Active Substance: IBUPROFEN
     Indication: OROPHARYNGEAL PAIN
  8. AMOXICILLIN. [Suspect]
     Active Substance: AMOXICILLIN
     Indication: COUGH
     Dosage: UNK
     Route: 065
  9. IBUPROFEN. [Suspect]
     Active Substance: IBUPROFEN
     Indication: COUGH
     Dosage: UNK
     Route: 065

REACTIONS (16)
  - Drug reaction with eosinophilia and systemic symptoms [Recovered/Resolved]
  - Leukocytosis [Recovered/Resolved]
  - Lymphocytosis [Recovered/Resolved]
  - Thrombocytopenia [Recovered/Resolved]
  - Arthralgia [Recovered/Resolved]
  - Blood creatine increased [Recovered/Resolved]
  - Lymphadenopathy [Recovered/Resolved]
  - Malaise [Recovered/Resolved]
  - Lethargy [Recovered/Resolved]
  - Haemolytic anaemia [Recovered/Resolved]
  - Hypotension [Recovered/Resolved]
  - Dyspnoea [Recovered/Resolved]
  - Eosinophilia [Recovered/Resolved]
  - Mental status changes [Recovered/Resolved]
  - Rash erythematous [Recovered/Resolved]
  - Pyrexia [Recovered/Resolved]
